FAERS Safety Report 5143621-3 (Version None)
Quarter: 2006Q4

REPORT INFORMATION
  Report Type: 
  Country: None (occurrence: None)
  Receive Date: 20061030
  Receipt Date: 20061016
  Transmission Date: 20070319
  Serious: Yes (Other)
  Sender: FDA-Public Use
  Company Number: 2006126834

PATIENT
  Sex: Female

DRUGS (1)
  1. SOBELIN  (CLINDAMYCIN HYDROCHLORIDE) [Suspect]
     Indication: TOOTH DISORDER
     Dosage: (1 IN 6 HR), ORAL
     Route: 048
     Dates: start: 20060101, end: 20060101

REACTIONS (3)
  - GASTRITIS [None]
  - GASTROINTESTINAL ULCER [None]
  - OESOPHAGITIS [None]
